FAERS Safety Report 15295333 (Version 6)
Quarter: 2020Q2

REPORT INFORMATION
  Report Type: Spontaneous
  Country: GB (occurrence: GB)
  Receive Date: 20180820
  Receipt Date: 20200501
  Transmission Date: 20200713
  Serious: Yes (Hospitalization, Other)
  Sender: FDA-Public Use
  Company Number: PHHY2015GB178141

PATIENT
  Sex: Female

DRUGS (31)
  1. DOCETAXEL. [Suspect]
     Active Substance: DOCETAXEL
     Dosage: 140 MG, TIW
     Route: 042
     Dates: start: 20150424, end: 20150605
  2. DOCETAXEL. [Suspect]
     Active Substance: DOCETAXEL
     Dosage: 150 MG, TIW
     Route: 042
     Dates: start: 20150515, end: 20150515
  3. TRASTUZUMAB EMTANSINE [Suspect]
     Active Substance: ADO-TRASTUZUMAB EMTANSINE
     Dosage: 260 MG, Q3W
     Route: 042
     Dates: start: 20160404, end: 20161102
  4. TRASTUZUMAB EMTANSINE [Suspect]
     Active Substance: ADO-TRASTUZUMAB EMTANSINE
     Dosage: 180 MG, Q3W
     Route: 042
     Dates: start: 20170208, end: 20170705
  5. BEROCCA [Concomitant]
     Active Substance: VITAMINS
     Indication: PRODUCT USED FOR UNKNOWN INDICATION
     Dosage: 1 DF
     Route: 048
  6. TRASTUZUMAB EMTANSINE [Suspect]
     Active Substance: ADO-TRASTUZUMAB EMTANSINE
     Dosage: 441 MG, QD
     Route: 065
     Dates: start: 20150808, end: 20160127
  7. TRASTUZUMAB. [Suspect]
     Active Substance: TRASTUZUMAB
     Dosage: 619.5 MG, QD(LOADING DOSE)
     Route: 041
     Dates: start: 20150423, end: 20150423
  8. TRASTUZUMAB. [Suspect]
     Active Substance: TRASTUZUMAB
     Dosage: 441 MG, Q3W (LAST DOSE ON 27 JAN 2016)
     Route: 042
     Dates: start: 20150808
  9. ADCAL D3 [Concomitant]
     Active Substance: CALCIUM CARBONATE\CHOLECALCIFEROL
     Dosage: 1 DF
     Route: 048
     Dates: start: 20150612
  10. NAVELBINE [Suspect]
     Active Substance: VINORELBINE TARTRATE
     Route: 065
  11. TAXOL [Suspect]
     Active Substance: PACLITAXEL
     Indication: PRODUCT USED FOR UNKNOWN INDICATION
     Dosage: UNK
     Route: 065
  12. DOCETAXEL. [Suspect]
     Active Substance: DOCETAXEL
     Dosage: 100 MG, TIW
     Route: 042
     Dates: start: 20150710, end: 20150826
  13. TRASTUZUMAB. [Suspect]
     Active Substance: TRASTUZUMAB
     Dosage: 483 MG, Q3W(MAINTAINANCE DOSE)
     Route: 042
     Dates: start: 20150515, end: 20150605
  14. TRASTUZUMAB. [Suspect]
     Active Substance: TRASTUZUMAB
     Dosage: 630 MG, Q3W
     Route: 042
     Dates: start: 20150710, end: 20150710
  15. PERTUZUMAB. [Suspect]
     Active Substance: PERTUZUMAB
     Dosage: 840 MG, QD (LOADING DOSE)
     Route: 042
     Dates: start: 20150423
  16. HALAVEN [Suspect]
     Active Substance: ERIBULIN MESYLATE
     Route: 065
  17. TAXOTERE [Suspect]
     Active Substance: DOCETAXEL
     Indication: PRODUCT USED FOR UNKNOWN INDICATION
     Dosage: UNK
     Route: 065
  18. DENOSUMAB [Concomitant]
     Active Substance: DENOSUMAB
     Indication: PRODUCT USED FOR UNKNOWN INDICATION
     Dosage: 120 MG, Q3W
     Route: 058
     Dates: start: 20150515
  19. AMITRIPTYLINE [Concomitant]
     Active Substance: AMITRIPTYLINE
     Indication: PRODUCT USED FOR UNKNOWN INDICATION
     Dosage: 30 MG, QD
     Route: 048
  20. TRASTUZUMAB EMTANSINE [Suspect]
     Active Substance: ADO-TRASTUZUMAB EMTANSINE
     Dosage: 630 MG, Q3W
     Route: 042
     Dates: start: 20150710, end: 20150710
  21. ABRAXANE [Suspect]
     Active Substance: PACLITAXEL
     Indication: PRODUCT USED FOR UNKNOWN INDICATION
     Dosage: UNK
     Route: 065
  22. NAVELBINE [Suspect]
     Active Substance: VINORELBINE TARTRATE
     Indication: PRODUCT USED FOR UNKNOWN INDICATION
     Dosage: UNK
     Route: 065
  23. ADCAL D3 [Concomitant]
     Active Substance: CALCIUM CARBONATE\CHOLECALCIFEROL
     Dosage: 1 TABLET
     Route: 048
     Dates: start: 20150612
  24. PERTUZUMAB. [Suspect]
     Active Substance: PERTUZUMAB
     Dosage: MAINTAINANCE DOSE (LAST DOSE ON 09 MAR 2016)
     Route: 042
     Dates: start: 20150515
  25. TAXOL [Suspect]
     Active Substance: PACLITAXEL
     Route: 065
  26. DENOSUMAB [Concomitant]
     Active Substance: DENOSUMAB
     Dosage: 120 MG, 6WK
     Route: 058
     Dates: start: 20160518, end: 20180907
  27. ADCAL D3 [Concomitant]
     Active Substance: CALCIUM CARBONATE\CHOLECALCIFEROL
     Indication: PRODUCT USED FOR UNKNOWN INDICATION
     Dosage: 1 DF, UNK
     Route: 048
  28. HALAVEN [Suspect]
     Active Substance: ERIBULIN MESYLATE
     Indication: PRODUCT USED FOR UNKNOWN INDICATION
     Dosage: UNK
     Route: 065
  29. CO-AMOXICLAV [Concomitant]
     Active Substance: AMOXICILLIN\CLAVULANATE POTASSIUM
     Indication: VASCULAR DEVICE INFECTION
     Dosage: 1875 MG, QD
     Route: 048
     Dates: start: 20160414, end: 20160420
  30. AMITRIPTYLINE [Concomitant]
     Active Substance: AMITRIPTYLINE
     Dosage: 30 MG, UNK
     Route: 048
     Dates: start: 201410
  31. TAZOCIN [Concomitant]
     Active Substance: PIPERACILLIN SODIUM\TAZOBACTAM SODIUM
     Indication: VASCULAR DEVICE INFECTION
     Dosage: 450 MG, UNK
     Route: 042

REACTIONS (31)
  - Alopecia [Recovered/Resolved]
  - Pyrexia [Not Recovered/Not Resolved]
  - Pain [Unknown]
  - Pneumonia [Recovered/Resolved]
  - Decreased appetite [Recovering/Resolving]
  - Peripheral sensory neuropathy [Not Recovered/Not Resolved]
  - Fatigue [Recovering/Resolving]
  - Pain [Recovered/Resolved]
  - Nausea [Unknown]
  - Dyspnoea [Recovering/Resolving]
  - Lower respiratory tract infection [Recovered/Resolved]
  - Constipation [Recovered/Resolved]
  - Stomatitis [Recovered/Resolved]
  - Stomatitis [Not Recovered/Not Resolved]
  - Palmar-plantar erythrodysaesthesia syndrome [Unknown]
  - Cellulitis [Recovered/Resolved]
  - Palmar-plantar erythrodysaesthesia syndrome [Recovered/Resolved]
  - Diarrhoea [Recovering/Resolving]
  - Headache [Recovered/Resolved]
  - Fungal infection [Recovered/Resolved]
  - Vascular device infection [Recovered/Resolved]
  - Cellulitis [Recovered/Resolved]
  - Back pain [Recovered/Resolved]
  - Gastrooesophageal reflux disease [Unknown]
  - Fatigue [Recovered/Resolved]
  - Decreased appetite [Recovered/Resolved]
  - Pyrexia [Recovered/Resolved]
  - Pain in extremity [Recovered/Resolved]
  - Neuropathy peripheral [Recovering/Resolving]
  - Diarrhoea [Recovered/Resolved]
  - Nasopharyngitis [Recovered/Resolved]

NARRATIVE: CASE EVENT DATE: 20150615
